FAERS Safety Report 10682972 (Version 1)
Quarter: 2014Q4

REPORT INFORMATION
  Report Type: Spontaneous
  Country: US (occurrence: None)
  Receive Date: 20141217
  Receipt Date: 20141217
  Transmission Date: 20150529
  Serious: Yes (Hospitalization, Other)
  Sender: FDA-Public Use
  Company Number: TPA2009A03317

PATIENT
  Age: 75 Year
  Sex: Female
  Weight: 45.36 kg

DRUGS (14)
  1. LANOXIN [Concomitant]
     Active Substance: DIGOXIN
  2. DEMADEX (TORASEMIDE) [Concomitant]
  3. OXYGEN (OXYGEN) [Concomitant]
     Active Substance: OXYGEN
  4. POTASSIUM (POTASSIUM) [Concomitant]
     Active Substance: POTASSIUM
  5. COREG [Concomitant]
     Active Substance: CARVEDILOL
  6. COUMADIN (WARFARIN) [Concomitant]
  7. LORTAB (PARACETAMOL, HYDROCODONE BITARTRATE) [Concomitant]
  8. ALDACTONE [Concomitant]
     Active Substance: SPIRONOLACTONE
  9. IPRATROPIUM (IPRATROPIUM) [Concomitant]
  10. PRILOSEC OTC (OMEPRAZOLE) [Concomitant]
  11. KAPIDEX [Suspect]
     Active Substance: DEXLANSOPRAZOLE
     Indication: GASTROOESOPHAGEAL REFLUX DISEASE
     Dosage: UNK, UNKNOWN, PER ORAL
     Route: 048
     Dates: start: 200910
  12. ZAROXOLN (METOLAZONE) [Concomitant]
  13. SEROQUEL [Concomitant]
     Active Substance: QUETIAPINE FUMARATE
  14. ALBUTEROL (SALBUAMOL) [Concomitant]

REACTIONS (1)
  - Vomiting [None]

NARRATIVE: CASE EVENT DATE: 200910
